FAERS Safety Report 6815509 (Version 1)
Quarter: 2020Q3

REPORT INFORMATION
  Report Type: Report from Study
  Country: US (occurrence: US)
  Receive Date: 20081119
  Receipt Date: 20081119
  Transmission Date: 20201104
  Serious: Yes (Other)
  Sender: FDA-Public Use
  Company Number: US-ROCHE-596904

PATIENT
  Sex: Female

DRUGS (2)
  1. IBANDRONIC ACID. [Suspect]
     Active Substance: IBANDRONIC ACID
     Route: 065
  2. IBANDRONIC ACID. [Suspect]
     Active Substance: IBANDRONIC ACID
     Indication: PRODUCT USED FOR UNKNOWN INDICATION
     Route: 065
     Dates: start: 200705

REACTIONS (2)
  - Knee operation [Unknown]
  - Surgery [Unknown]

NARRATIVE: CASE EVENT DATE: 20070701
